FAERS Safety Report 5069759-7 (Version None)
Quarter: 2006Q3

REPORT INFORMATION
  Report Type: 
  Country: None (occurrence: None)
  Receive Date: 20060803
  Receipt Date: 20051117
  Transmission Date: 20061208
  Serious: Yes (Hospitalization)
  Sender: FDA-Public Use
  Company Number: US-GLAXOSMITHKLINE-A0583153A

PATIENT
  Age: 14 Year
  Sex: Female

DRUGS (3)
  1. PAXIL [Suspect]
     Indication: BIPOLAR DISORDER
     Dosage: 20MG PER DAY
     Route: 048
     Dates: start: 20000601, end: 20000820
  2. IBUPROFEN [Suspect]
     Dosage: 90TAB SINGLE DOSE
     Route: 048
     Dates: start: 20000817
  3. TRAZODONE HCL [Concomitant]
     Indication: DEPRESSION

REACTIONS (5)
  - DEPRESSION [None]
  - DRUG INEFFECTIVE [None]
  - OVERDOSE [None]
  - SELF MUTILATION [None]
  - SUICIDE ATTEMPT [None]
